FAERS Safety Report 11378571 (Version 1)
Quarter: 2015Q3

REPORT INFORMATION
  Report Type: Spontaneous
  Country: US (occurrence: US)
  Receive Date: 20150811
  Receipt Date: 20150811
  Transmission Date: 20151125
  Serious: No
  Sender: FDA-Public Use
  Company Number: US-ELI_LILLY_AND_COMPANY-US200810004993

PATIENT
  Sex: Male

DRUGS (5)
  1. HUMULIN N [Suspect]
     Active Substance: INSULIN HUMAN
     Dosage: 4 U, EACH EVENING
  2. HUMULIN N [Suspect]
     Active Substance: INSULIN HUMAN
     Indication: DIABETES MELLITUS
     Dosage: 17.8 U, EACH MORNING
     Dates: start: 2007
  3. HUMULIN L [Suspect]
     Active Substance: INSULIN HUMAN
  4. LANTUS [Concomitant]
     Active Substance: INSULIN GLARGINE
  5. HUMULIN R [Suspect]
     Active Substance: INSULIN HUMAN
     Indication: DIABETES MELLITUS
     Dates: start: 2007

REACTIONS (4)
  - Blood glucose increased [Not Recovered/Not Resolved]
  - Blood glucose decreased [Not Recovered/Not Resolved]
  - Diabetic retinopathy [Not Recovered/Not Resolved]
  - Dental caries [Not Recovered/Not Resolved]
